FAERS Safety Report 6700003-8 (Version None)
Quarter: 2010Q2

REPORT INFORMATION
  Report Type: 
  Country: None (occurrence: None)
  Receive Date: 20100427
  Receipt Date: 20100427
  Transmission Date: 20101027
  Serious: Yes (Hospitalization)
  Sender: FDA-Public Use
  Company Number: None

PATIENT
  Sex: Female
  Weight: 72 kg

DRUGS (6)
  1. CYCLOPHOSPHAMIDE [Suspect]
     Dosage: 3760 MG
  2. CYTARABINE [Suspect]
     Dosage: 2256 MG
  3. MERCAPTOPURINE [Suspect]
     Dosage: 3136 MG
  4. METHOTREXATE [Suspect]
     Dosage: 60 MG
  5. PEG-L ASPARAGINASE (K-H) [Suspect]
     Dosage: 9400 MG
  6. VINCRISTINE SULFATE [Suspect]
     Dosage: 8 MG

REACTIONS (6)
  - HAEMOGLOBIN DECREASED [None]
  - INFECTION [None]
  - NEUTROPHIL COUNT DECREASED [None]
  - PLATELET COUNT DECREASED [None]
  - PYREXIA [None]
  - WHITE BLOOD CELL COUNT DECREASED [None]
